FAERS Safety Report 24692045 (Version 1)
Quarter: 2024Q4

REPORT INFORMATION
  Report Type: Spontaneous
  Country: US (occurrence: US)
  Receive Date: 20241203
  Receipt Date: 20241203
  Transmission Date: 20250115
  Serious: Yes (Other)
  Sender: SEPTODONT
  Company Number: US-SEPTODONT-2024019224

PATIENT

DRUGS (3)
  1. CARBOCAINE [Suspect]
     Active Substance: MEPIVACAINE HYDROCHLORIDE
     Indication: Dental local anaesthesia
     Route: 004
  2. BENZOCAINE [Suspect]
     Active Substance: BENZOCAINE
     Indication: Dental local anaesthesia
     Route: 004
  3. LIDOCAINE [Suspect]
     Active Substance: LIDOCAINE
     Indication: Dental local anaesthesia

REACTIONS (1)
  - Anaphylactic reaction [Unknown]
